FAERS Safety Report 19697695 (Version 1)
Quarter: 2021Q3

REPORT INFORMATION
  Report Type: Spontaneous
  Country: US (occurrence: US)
  Receive Date: 20210813
  Receipt Date: 20210813
  Transmission Date: 20211014
  Serious: Yes (Hospitalization, Disabling, Other)
  Sender: FDA-Public Use
  Company Number: None

PATIENT
  Age: 80 Year
  Sex: Male
  Weight: 61.24 kg

DRUGS (12)
  1. ABILIFY [Suspect]
     Active Substance: ARIPIPRAZOLE
     Indication: SCHIZOPHRENIA
     Route: 048
     Dates: start: 20200916, end: 20210406
  2. LOSARTAN. [Concomitant]
     Active Substance: LOSARTAN
  3. CENTRUM SILVER [Concomitant]
     Active Substance: MINERALS\VITAMINS
  4. SIMVASTATIN. [Concomitant]
     Active Substance: SIMVASTATIN
  5. INVEGA [Suspect]
     Active Substance: PALIPERIDONE
     Indication: SCHIZOPHRENIA
     Route: 048
     Dates: start: 20200916, end: 20210406
  6. JARDIANCE [Concomitant]
     Active Substance: EMPAGLIFLOZIN
  7. ASPIRIN 81 MG [Concomitant]
     Active Substance: ASPIRIN
  8. METOPROLOL. [Concomitant]
     Active Substance: METOPROLOL
  9. SENNA TEA [Concomitant]
  10. LASIX [Concomitant]
     Active Substance: FUROSEMIDE
  11. VITAMIN D3 [Concomitant]
     Active Substance: CHOLECALCIFEROL
  12. METOPROLOL. [Concomitant]
     Active Substance: METOPROLOL

REACTIONS (3)
  - Balance disorder [None]
  - Injury [None]
  - Fall [None]

NARRATIVE: CASE EVENT DATE: 20210806
